FAERS Safety Report 7773450-3 (Version None)
Quarter: 2011Q3

REPORT INFORMATION
  Report Type: 
  Country: None (occurrence: None)
  Receive Date: 20110922
  Receipt Date: 20110919
  Transmission Date: 20111222
  Serious: Yes (Other)
  Sender: FDA-Public Use
  Company Number: US-MERCK-1109USA01945

PATIENT
  Age: 81 Year
  Sex: Female

DRUGS (8)
  1. ALBUTEROL [Concomitant]
     Indication: ASTHMA
     Route: 065
  2. BIOTIN [Concomitant]
     Route: 065
  3. CALCIUM (UNSPECIFIED) AND CHOLECALCIFEROL [Concomitant]
     Route: 065
  4. UBIDECARENONE [Concomitant]
     Route: 065
  5. OMEGA-3 MARINE TRIGLYCERIDES [Concomitant]
     Route: 065
  6. FOSAMAX [Suspect]
     Route: 048
  7. SINGULAIR [Concomitant]
     Route: 065
  8. ADVAIR DISKUS 100/50 [Concomitant]
     Route: 065

REACTIONS (2)
  - FALL [None]
  - HIP FRACTURE [None]
